FAERS Safety Report 6835298-3 (Version None)
Quarter: 2010Q3

REPORT INFORMATION
  Report Type: 
  Country: None (occurrence: None)
  Receive Date: 20100713
  Receipt Date: 20070409
  Transmission Date: 20110219
  Serious: No
  Sender: FDA-Public Use
  Company Number: US-PFIZER INC-2007029094

PATIENT
  Sex: Female
  Weight: 63.5 kg

DRUGS (5)
  1. CHANTIX [Suspect]
     Indication: SMOKING CESSATION THERAPY
     Dates: start: 20070330
  2. MAXZIDE [Concomitant]
  3. TRAZODONE HYDROCHLORIDE [Concomitant]
     Indication: SLEEP DISORDER
  4. EFFEXOR [Concomitant]
  5. NALTREXONE [Concomitant]
     Indication: ALCOHOL USE

REACTIONS (4)
  - DRUG ADMINISTRATION ERROR [None]
  - NAUSEA [None]
  - THIRST [None]
  - VOMITING [None]
